FAERS Safety Report 16048775 (Version 6)
Quarter: 2019Q4

REPORT INFORMATION
  Report Type: Spontaneous
  Country: US (occurrence: US)
  Receive Date: 20190307
  Receipt Date: 20191001
  Transmission Date: 20200122
  Serious: Yes (Hospitalization)
  Sender: FDA-Public Use
  Company Number: US-VERTEX PHARMACEUTICALS-2019-001802

PATIENT
  Age: 15 Year
  Sex: Female

DRUGS (5)
  1. CEFTAZIDIME. [Suspect]
     Active Substance: CEFTAZIDIME
     Indication: INFECTIVE PULMONARY EXACERBATION OF CYSTIC FIBROSIS
  2. SYMDEKO [Suspect]
     Active Substance: IVACAFTOR\TEZACAFTOR
     Indication: CYSTIC FIBROSIS
     Dosage: 100MG TEZACAFTOR/150MG IVACAFTOR; 150MG IVACAFTOR (FREQUENCY UNKNOWN)
     Route: 048
     Dates: start: 20181023, end: 20190627
  3. CEFTAZIDIME. [Suspect]
     Active Substance: CEFTAZIDIME
     Indication: SINUSITIS
     Route: 042
  4. LEVAQUIN [Suspect]
     Active Substance: LEVOFLOXACIN
     Indication: SINUSITIS
     Route: 042
  5. LEVAQUIN [Suspect]
     Active Substance: LEVOFLOXACIN
     Indication: INFECTIVE PULMONARY EXACERBATION OF CYSTIC FIBROSIS

REACTIONS (5)
  - Alanine aminotransferase increased [Recovered/Resolved]
  - Infective pulmonary exacerbation of cystic fibrosis [Recovering/Resolving]
  - Blood alkaline phosphatase increased [Recovered/Resolved]
  - Aspartate aminotransferase increased [Recovered/Resolved]
  - Sinusitis [Recovering/Resolving]

NARRATIVE: CASE EVENT DATE: 20190206
